FAERS Safety Report 10200037 (Version 1)
Quarter: 2014Q2

REPORT INFORMATION
  Report Type: Spontaneous
  Country: US (occurrence: US)
  Receive Date: 20140527
  Receipt Date: 20140527
  Transmission Date: 20141212
  Serious: No
  Sender: FDA-Public Use
  Company Number: US-NOVEN-14US009179

PATIENT
  Age: 21 Year
  Sex: Female

DRUGS (2)
  1. DAYTRANA [Suspect]
     Indication: ATTENTION DEFICIT/HYPERACTIVITY DISORDER
     Dosage: 30MG X2 + 10MG, QD
     Route: 062
     Dates: start: 201403
  2. DAYTRANA [Suspect]
     Dosage: TWO PATCHES QD (DOSAGE NOT SPECIFIED)
     Route: 062
     Dates: start: 201403, end: 201403

REACTIONS (4)
  - Wrong technique in drug usage process [Not Recovered/Not Resolved]
  - Off label use [Not Recovered/Not Resolved]
  - Product quality issue [Not Recovered/Not Resolved]
  - No adverse event [None]
